FAERS Safety Report 7012520-4 (Version None)
Quarter: 2010Q3

REPORT INFORMATION
  Report Type: 
  Country: None (occurrence: None)
  Receive Date: 20100913
  Receipt Date: 20100427
  Transmission Date: 20110219
  Serious: Yes (Other)
  Sender: FDA-Public Use
  Company Number: 2010SP024137

PATIENT
  Age: 20 Year
  Sex: Female
  Weight: 43.0917 kg

DRUGS (1)
  1. IMPLANON [Suspect]
     Indication: PRODUCT USED FOR UNKNOWN INDICATION
     Dosage: 1 DF; PRESENT
     Dates: start: 20090801

REACTIONS (5)
  - BACK PAIN [None]
  - CEREBROVASCULAR ACCIDENT [None]
  - NAUSEA [None]
  - VISUAL IMPAIRMENT [None]
  - WEIGHT DECREASED [None]
